FAERS Safety Report 14735302 (Version 2)
Quarter: 2018Q3

REPORT INFORMATION
  Report Type: Spontaneous
  Country: US (occurrence: US)
  Receive Date: 20180409
  Receipt Date: 20180706
  Transmission Date: 20181010
  Serious: No
  Sender: FDA-Public Use
  Company Number: US-HILL DERMACEUTICALS, INC.-2045380

PATIENT
  Age: 58 Year
  Sex: Male

DRUGS (1)
  1. TOLAK [Suspect]
     Active Substance: FLUOROURACIL
     Indication: ACTINIC KERATOSIS
     Route: 061

REACTIONS (3)
  - Hypersensitivity [Unknown]
  - Rash [Unknown]
  - Application site vesicles [Unknown]
